FAERS Safety Report 4726888-2 (Version None)
Quarter: 2005Q3

REPORT INFORMATION
  Report Type: 
  Country: None (occurrence: None)
  Receive Date: 20050725
  Receipt Date: 20050725
  Transmission Date: 20060218
  Serious: Yes (Hospitalization)
  Sender: FDA-Public Use
  Company Number: None

PATIENT
  Age: 53 Year
  Sex: Male
  Weight: 68.9467 kg

DRUGS (6)
  1. IRBESARTAN [Suspect]
     Indication: HYPERTENSION
     Dosage: 150MG QD ORAL
     Route: 048
     Dates: start: 20050101, end: 20050502
  2. DIAZEPAM [Concomitant]
  3. HUMULIN 70/30 [Concomitant]
  4. IRBESARTAN [Concomitant]
  5. METOLAZONE [Concomitant]
  6. ZOCOR [Concomitant]

REACTIONS (3)
  - BLOOD POTASSIUM INCREASED [None]
  - CONDITION AGGRAVATED [None]
  - ELECTROCARDIOGRAM T WAVE PEAKED [None]
